FAERS Safety Report 4944423-0 (Version None)
Quarter: 2006Q1

REPORT INFORMATION
  Report Type: 
  Country: None (occurrence: None)
  Receive Date: 20060315
  Receipt Date: 20050204
  Transmission Date: 20060701
  Serious: Yes (Hospitalization)
  Sender: FDA-Public Use
  Company Number: US-MERCK-0502USA00665

PATIENT
  Age: 84 Year
  Sex: Male
  Weight: 80 kg

DRUGS (28)
  1. VIOXX [Suspect]
     Indication: OSTEOARTHRITIS
     Route: 048
     Dates: start: 20000711, end: 20041001
  2. DOXAZOSIN MESYLATE [Concomitant]
     Route: 065
  3. LASIX [Concomitant]
     Route: 065
  4. LANOXIN [Concomitant]
     Route: 065
  5. HYZAAR [Concomitant]
     Route: 048
  6. ALLOPURINOL [Concomitant]
     Route: 048
  7. ZAROXOLYN [Concomitant]
     Route: 048
  8. CYCLOCORT [Concomitant]
     Route: 065
  9. TENORMIN [Concomitant]
     Route: 065
  10. LOTRISONE [Concomitant]
     Route: 065
  11. NIZORAL [Concomitant]
     Route: 065
  12. BACITRACIN [Concomitant]
     Route: 065
  13. OCUFLOX [Concomitant]
     Route: 065
  14. ALTACE [Concomitant]
     Route: 065
  15. [THERAPY UNSPECIFIED] [Concomitant]
     Route: 065
  16. DIGITEK [Concomitant]
     Route: 065
  17. CYANOCOBALAMIN [Concomitant]
     Route: 065
  18. DIAMOX [Concomitant]
     Route: 065
  19. COREG [Concomitant]
     Route: 065
  20. [THERAPY UNSPECIFIED] [Concomitant]
     Route: 065
  21. AUGMENTIN '125' [Concomitant]
     Route: 065
  22. ALPRAZOLAM [Concomitant]
     Route: 065
  23. DOXYCYCLINE [Concomitant]
     Route: 065
  24. LEVAQUIN [Concomitant]
     Route: 065
  25. PLAVIX [Concomitant]
     Route: 065
  26. COZAAR [Concomitant]
     Route: 065
  27. COLCHICINE INJECTION [Concomitant]
     Route: 065
  28. NORVASC [Concomitant]
     Route: 065

REACTIONS (32)
  - ANORECTAL DISORDER [None]
  - ASTHENIA [None]
  - BLINDNESS [None]
  - BLOOD CHOLESTEROL INCREASED [None]
  - BLOOD POTASSIUM DECREASED [None]
  - BLOOD TRIGLYCERIDES INCREASED [None]
  - CARDIAC MURMUR [None]
  - CARPAL TUNNEL SYNDROME [None]
  - CEREBROVASCULAR ACCIDENT [None]
  - CHRONIC OBSTRUCTIVE PULMONARY DISEASE [None]
  - CORONARY ARTERY DISEASE [None]
  - DEHYDRATION [None]
  - DIZZINESS [None]
  - DYSPNOEA [None]
  - ECCHYMOSIS [None]
  - FALL [None]
  - GASTRIC ULCER [None]
  - HEPATIC STEATOSIS [None]
  - HYPONATRAEMIA [None]
  - INJURY [None]
  - MASS [None]
  - MYOCARDIAL INFARCTION [None]
  - NERVE COMPRESSION [None]
  - NEUROPATHY PERIPHERAL [None]
  - ORTHOSTATIC HYPOTENSION [None]
  - PLATELET COUNT DECREASED [None]
  - PROSTATE EXAMINATION ABNORMAL [None]
  - RALES [None]
  - RENAL FAILURE ACUTE [None]
  - SYNCOPE [None]
  - TRANSIENT ISCHAEMIC ATTACK [None]
  - WHEEZING [None]
